FAERS Safety Report 15656053 (Version 1)
Quarter: 2018Q4

REPORT INFORMATION
  Report Type: Spontaneous
  Country: US (occurrence: US)
  Receive Date: 20181115
  Receipt Date: 20181115
  Transmission Date: 20190205
  Serious: Yes (Other)
  Sender: FDA-Public Use
  Company Number: None

PATIENT
  Age: 78 Year
  Sex: Male
  Weight: 74.25 kg

DRUGS (9)
  1. VITAMIN B COMPLEX [Concomitant]
     Active Substance: CYANOCOBALAMIN\DEXPANTHENOL\NIACINAMIDE\PYRIDOXINE HYDROCHLORIDE\RIBOFLAVIN 5^-PHOSPHATE SODIUM\THIAMINE HYDROCHLORIDE\VITAMIN B COMPLEX
  2. METOPROLOL. [Concomitant]
     Active Substance: METOPROLOL
  3. VITAMIN D [Concomitant]
     Active Substance: CHOLECALCIFEROL
  4. TAMSULOSIN [Concomitant]
     Active Substance: TAMSULOSIN
  5. RAMIPRIL. [Concomitant]
     Active Substance: RAMIPRIL
  6. BABY ASPIRIN [Concomitant]
     Active Substance: ASPIRIN
  7. FOLIC ACID. [Concomitant]
     Active Substance: FOLIC ACID
  8. REPATHA [Suspect]
     Active Substance: EVOLOCUMAB
     Indication: LOW DENSITY LIPOPROTEIN INCREASED
     Dosage: ?          QUANTITY:1 INJECTION(S);OTHER FREQUENCY:15 DAYS;?
     Route: 058
     Dates: start: 20180911, end: 20181111
  9. TYRO....AMOXIL IN [Concomitant]

REACTIONS (4)
  - Bronchitis [None]
  - Cough [None]
  - Pneumonia [None]
  - Nodule [None]

NARRATIVE: CASE EVENT DATE: 20180926
